FAERS Safety Report 25405276 (Version 1)
Quarter: 2025Q2

REPORT INFORMATION
  Report Type: Spontaneous
  Country: CN (occurrence: CN)
  Receive Date: 20250606
  Receipt Date: 20250606
  Transmission Date: 20250716
  Serious: Yes (Other)
  Sender: Kenvue
  Company Number: CN-KENVUE-20250600757

PATIENT

DRUGS (6)
  1. CHILDRENS MOTRIN [Suspect]
     Active Substance: IBUPROFEN
     Indication: Upper respiratory tract infection
     Route: 048
     Dates: start: 20250524
  2. CHILDRENS MOTRIN [Suspect]
     Active Substance: IBUPROFEN
     Indication: Pyrexia
  3. AMOXICILLIN AND CLAVULANATE POTASSIUM [Suspect]
     Active Substance: AMOXICILLIN\CLAVULANATE POTASSIUM
     Indication: Upper respiratory tract infection
     Route: 048
     Dates: start: 20250524
  4. AMOXICILLIN AND CLAVULANATE POTASSIUM [Suspect]
     Active Substance: AMOXICILLIN\CLAVULANATE POTASSIUM
     Indication: Pyrexia
  5. HERBALS [Suspect]
     Active Substance: HERBALS
     Indication: Upper respiratory tract infection
     Route: 048
     Dates: start: 20250524
  6. HERBALS [Suspect]
     Active Substance: HERBALS
     Indication: Pyrexia

REACTIONS (4)
  - Tremor [Recovering/Resolving]
  - Pallor [Recovering/Resolving]
  - Off label use [Unknown]
  - Abdominal pain [Recovering/Resolving]

NARRATIVE: CASE EVENT DATE: 20250524
